FAERS Safety Report 10934990 (Version 1)
Quarter: 2015Q1

REPORT INFORMATION
  Report Type: Spontaneous
  Country: US (occurrence: US)
  Receive Date: 20150320
  Receipt Date: 20150320
  Transmission Date: 20150721
  Serious: Yes (Hospitalization, Other)
  Sender: FDA-Public Use
  Company Number: US-PFIZER INC-2015098086

PATIENT
  Age: 49 Year
  Sex: Female
  Weight: 86.17 kg

DRUGS (2)
  1. PROVERA [Suspect]
     Active Substance: MEDROXYPROGESTERONE ACETATE
     Dosage: UNK
  2. ULLTRA WOMEN 50 PLUS [Suspect]
     Active Substance: HERBALS\MINERALS\VITAMINS
     Indication: SUPPLEMENTATION THERAPY
     Dosage: 1 DF, 1X/DAY
     Route: 048
     Dates: start: 2013

REACTIONS (8)
  - Nephrocalcinosis [Unknown]
  - Gait disturbance [Unknown]
  - Weight increased [Unknown]
  - Pain [Unknown]
  - Thrombosis [Unknown]
  - Bone pain [Recovered/Resolved]
  - Wrong drug administered [Unknown]
  - Renal failure [Unknown]

NARRATIVE: CASE EVENT DATE: 2013
